FAERS Safety Report 19055507 (Version 1)
Quarter: 2021Q1

REPORT INFORMATION
  Report Type: Spontaneous
  Country: BR (occurrence: BR)
  Receive Date: 20210324
  Receipt Date: 20210324
  Transmission Date: 20210420
  Serious: Yes (Hospitalization, Other)
  Sender: FDA-Public Use
  Company Number: BR-BRISTOL-MYERS SQUIBB COMPANY-BMS-2021-025954

PATIENT
  Age: 83 Year
  Sex: Male

DRUGS (8)
  1. HYDREA [Suspect]
     Active Substance: HYDROXYUREA
     Indication: ESSENTIAL THROMBOCYTHAEMIA
     Dosage: 1 PILL A DAY (STRENGTHS: 500 MG, 1000 MG, 2000 MG)
     Route: 048
     Dates: end: 202007
  2. HYDREA [Suspect]
     Active Substance: HYDROXYUREA
     Dosage: MONDAY, WEDNESDAY, FRIDAY AND SUNDAY TOOK 4 PILLS FOR 12 WEEKS
     Route: 048
  3. HYDREA [Suspect]
     Active Substance: HYDROXYUREA
     Dosage: 2 PILLS A DAY AND ONLY ON SUNDAY TAKES 4 PILLS
     Route: 048
  4. XARELTO [Concomitant]
     Active Substance: RIVAROXABAN
     Indication: PRODUCT USED FOR UNKNOWN INDICATION
     Dosage: UNK
     Route: 065
  5. ESOMEPRAZOLE. [Concomitant]
     Active Substance: ESOMEPRAZOLE MAGNESIUM
     Indication: PRODUCT USED FOR UNKNOWN INDICATION
     Dosage: UNK
     Route: 065
  6. ARADOIS [Concomitant]
     Active Substance: LOSARTAN POTASSIUM
     Indication: PRODUCT USED FOR UNKNOWN INDICATION
     Dosage: UNK
     Route: 065
  7. ROSUVASTATINA [ROSUVASTATIN CALCIUM] [Concomitant]
     Indication: PRODUCT USED FOR UNKNOWN INDICATION
     Dosage: UNK
     Route: 065
  8. AAS [Concomitant]
     Active Substance: ASPIRIN
     Indication: PRODUCT USED FOR UNKNOWN INDICATION
     Dosage: UNK
     Route: 065

REACTIONS (2)
  - Platelet count increased [Unknown]
  - Splenic vein thrombosis [Unknown]

NARRATIVE: CASE EVENT DATE: 202007
